FAERS Safety Report 14157136 (Version 1)
Quarter: 2017Q4

REPORT INFORMATION
  Report Type: Other
  Country: None (occurrence: IN)
  Receive Date: 20171103
  Receipt Date: 20171103
  Transmission Date: 20180321
  Serious: Yes (Other)
  Sender: FDA-Public Use
  Company Number: IN-BIO-PHARM, INC -2033177

PATIENT
  Age: 50 Year
  Sex: Male

DRUGS (1)
  1. MEMANTINE HCL ORAL SOLUTION [Suspect]
     Active Substance: MEMANTINE

REACTIONS (1)
  - Hyponatraemia [Recovered/Resolved]
